FAERS Safety Report 9344318 (Version 1)
Quarter: 2013Q2

REPORT INFORMATION
  Report Type: Spontaneous
  Country: US (occurrence: US)
  Receive Date: 20130612
  Receipt Date: 20130612
  Transmission Date: 20140414
  Serious: Yes (Death)
  Sender: FDA-Public Use
  Company Number: US-ASTELLAS-2013US006087

PATIENT
  Age: 3 Year
  Sex: Male

DRUGS (1)
  1. AMBISOME [Suspect]
     Indication: COCCIDIOIDOMYCOSIS
     Dosage: 5 MG/KG, UID/QD
     Route: 065

REACTIONS (1)
  - Drug ineffective [Fatal]
